FAERS Safety Report 13075206 (Version 1)
Quarter: 2016Q4

REPORT INFORMATION
  Report Type: Report from Study
  Country: BR (occurrence: BR)
  Receive Date: 20161230
  Receipt Date: 20161230
  Transmission Date: 20170207
  Serious: Yes (Death, Hospitalization, Other)
  Sender: FDA-Public Use
  Company Number: BR-SUN PHARMACEUTICAL INDUSTRIES LTD-2016R1-130213

PATIENT
  Age: 30 Year
  Sex: Male

DRUGS (2)
  1. GEMCITABINE [Suspect]
     Active Substance: GEMCITABINE\GEMCITABINE HYDROCHLORIDE
     Indication: GERM CELL NEOPLASM
     Dosage: 1000 MG/M^2 ON DAYS 1, 8, AND 15
     Route: 065
  2. PACLITAXEL. [Concomitant]
     Active Substance: PACLITAXEL
     Indication: GERM CELL NEOPLASM
     Dosage: 100 MG/M^2 ON DAY 1 OF 28 DAY CYCLE
     Route: 065

REACTIONS (4)
  - Intracranial haematoma [Fatal]
  - Brain death [Fatal]
  - Haemorrhage intracranial [Fatal]
  - Thrombotic microangiopathy [Fatal]
